FAERS Safety Report 4772376-7 (Version None)
Quarter: 2005Q3

REPORT INFORMATION
  Report Type: 
  Country: None (occurrence: None)
  Receive Date: 20050919
  Receipt Date: 20050204
  Transmission Date: 20060218
  Serious: No
  Sender: FDA-Public Use
  Company Number: US-BRISTOL-MYERS SQUIBB COMPANY-12850434

PATIENT
  Age: 53 Year
  Sex: Female
  Weight: 48 kg

DRUGS (4)
  1. KENALOG-40 [Suspect]
     Indication: NASAL CONGESTION
     Route: 030
     Dates: start: 20041010, end: 20041217
  2. PEPCID AC [Concomitant]
  3. CLARITIN [Concomitant]
  4. SINGULAIR [Concomitant]

REACTIONS (1)
  - INTRAOCULAR PRESSURE INCREASED [None]
